FAERS Safety Report 15008286 (Version 3)
Quarter: 2018Q3

REPORT INFORMATION
  Report Type: Not Available
  Country: US (occurrence: US)
  Receive Date: 20180613
  Receipt Date: 20180716
  Transmission Date: 20181010
  Serious: Yes (Other)
  Sender: FDA-Public Use
  Company Number: US-NEUROCRINE BIOSCIENCES INC.-2018NBI01667

PATIENT
  Age: 73 Year
  Sex: Female

DRUGS (7)
  1. GABAPENTIN. [Concomitant]
     Active Substance: GABAPENTIN
     Indication: NEUROPATHY PERIPHERAL
     Route: 048
  2. ALPHA LIPOIC ACID [Concomitant]
     Active Substance: .ALPHA.-LIPOIC ACID
     Indication: NEUROPATHY PERIPHERAL
     Dates: start: 201806
  3. INGREZZA [Suspect]
     Active Substance: VALBENAZINE
     Indication: TARDIVE DYSKINESIA
     Route: 048
     Dates: start: 20171201, end: 20171207
  4. ACETYL?L?CARNITINE [Concomitant]
     Indication: NEUROPATHY PERIPHERAL
     Dates: start: 201806
  5. INGREZZA [Suspect]
     Active Substance: VALBENAZINE
     Dosage: DOSE WAS DOUBLED
     Route: 048
  6. INGREZZA [Suspect]
     Active Substance: VALBENAZINE
     Route: 048
     Dates: start: 20171208
  7. INGREZZA [Suspect]
     Active Substance: VALBENAZINE
     Route: 048
     Dates: start: 20180604

REACTIONS (4)
  - Somnolence [Unknown]
  - Fatigue [Unknown]
  - Thrombosis [Unknown]
  - Drug dispensing error [Unknown]

NARRATIVE: CASE EVENT DATE: 201805
